FAERS Safety Report 20468580 (Version 1)
Quarter: 2022Q1

REPORT INFORMATION
  Report Type: Spontaneous
  Country: US (occurrence: US)
  Receive Date: 20220214
  Receipt Date: 20220214
  Transmission Date: 20220424
  Serious: Yes (Hospitalization, Other)
  Sender: FDA-Public Use
  Company Number: US-MMM-78AOQX6B

PATIENT
  Age: 82 Year
  Sex: Female

DRUGS (8)
  1. INCRUSE ELLIPTA [Suspect]
     Active Substance: UMECLIDINIUM BROMIDE
     Indication: Asthma
     Dosage: 62.5 UG, QD, ONCE EACH MORNING
     Dates: start: 20191205
  2. ASPIRIN [Suspect]
     Active Substance: ASPIRIN
     Indication: Product used for unknown indication
     Dosage: 4 DF
     Dates: start: 20210329, end: 20210329
  3. OXYGEN [Suspect]
     Active Substance: OXYGEN
     Indication: Oxygen saturation decreased
     Dosage: NUMBER 2
     Dates: start: 20210212
  4. ELIQUIS [Suspect]
     Active Substance: APIXABAN
     Indication: Atrial fibrillation
     Dosage: 2.5 MG, BID
     Dates: start: 20210301
  5. ALBUTEROL SULFATE [Concomitant]
     Active Substance: ALBUTEROL SULFATE
     Indication: Asthma
     Dosage: 0.083% / 2.5MG / 3ML AS NEEDED
     Dates: start: 20210403
  6. DORZOLAMIDE [Concomitant]
     Active Substance: DORZOLAMIDE
     Indication: Macular degeneration
     Dosage: UNK, BID,2%, 1 DROP IN EACH EYE TWICE DAILY (EACH NIGHT AND EACH AM)
     Dates: start: 2016
  7. LATANOPROST [Concomitant]
     Active Substance: LATANOPROST
     Indication: Macular degeneration
     Dosage: UNK, QD,0.0005%, ONE DROP ONCE PER DAY IN THE RIGHT EYE
     Dates: start: 2018
  8. LATANOPROST [Concomitant]
     Active Substance: LATANOPROST
     Indication: Glaucoma

REACTIONS (9)
  - Pericarditis [Unknown]
  - Pleural effusion [Not Recovered/Not Resolved]
  - Pericardial effusion [Not Recovered/Not Resolved]
  - Atrial fibrillation [Unknown]
  - Palpitations [Unknown]
  - Pulmonary thrombosis [Unknown]
  - Haematochezia [Unknown]
  - Dyspnoea [Unknown]
  - Arterial occlusive disease [Unknown]

NARRATIVE: CASE EVENT DATE: 20210212
